FAERS Safety Report 24712643 (Version 1)
Quarter: 2024Q4

REPORT INFORMATION
  Report Type: Spontaneous
  Country: GB (occurrence: GB)
  Receive Date: 20241209
  Receipt Date: 20241209
  Transmission Date: 20250114
  Serious: Yes (Other)
  Sender: MYLAN
  Company Number: GB-MHRA-TPP1514765C22275880YC1733147793596

PATIENT
  Age: 61 Year
  Sex: Female
  Weight: 66 kg

DRUGS (29)
  1. CANDESARTAN [Suspect]
     Active Substance: CANDESARTAN
     Indication: Ill-defined disorder
     Dosage: 8 MILLIGRAM, QD (1 EVERY DAY FOR BLOOD PRESSURE CONTROL - INCREA...)
     Route: 065
     Dates: start: 20240812
  2. CANDESARTAN [Suspect]
     Active Substance: CANDESARTAN
     Indication: Hypertension
  3. LOSARTAN [Concomitant]
     Active Substance: LOSARTAN
     Indication: Ill-defined disorder
     Dosage: 1 DOSAGE FORM, QD (TAKE ONE DAILY)
     Route: 065
     Dates: start: 20241022, end: 20241119
  4. DYMISTA [Concomitant]
     Active Substance: AZELASTINE HYDROCHLORIDE\FLUTICASONE PROPIONATE
     Indication: Ill-defined disorder
     Dosage: UNK, BID (ONE PUFF TWICE DAILY EACH NOSTRIL)
     Route: 045
     Dates: start: 20241030, end: 20241127
  5. PREGABALIN [Concomitant]
     Active Substance: PREGABALIN
     Indication: Ill-defined disorder
     Dosage: 1 DOSAGE FORM, BID (ONE TO BE TAKEN TWICE A DAY - TAKE SECOND DOSE ...)
     Route: 065
     Dates: start: 20240812
  6. FLUTICASONE PROPIONATE [Concomitant]
     Active Substance: FLUTICASONE PROPIONATE
     Indication: Ill-defined disorder
     Dosage: UNK, BID (ONE PUFF INTO EACH NOSTRIL TO BE INHALED TWICE ...)
     Route: 045
     Dates: start: 20241122
  7. POLYETHYLENE GLYCOLS [Concomitant]
     Active Substance: POLYETHYLENE GLYCOLS
     Indication: Ill-defined disorder
     Dosage: UNK (TAKE AS ADVISED AND CAN TAKE UP TO THREE PER DAY)
     Route: 065
     Dates: start: 20241127
  8. Aproderm emollient [Concomitant]
     Indication: Ill-defined disorder
     Dosage: UNK (USE AS EMOLLIENT OR WASH - SAME AS AVEENO (AVEE...)
     Route: 065
     Dates: start: 20241201
  9. CLOBETASOL PROPIONATE [Concomitant]
     Active Substance: CLOBETASOL PROPIONATE
     Indication: Ill-defined disorder
     Dosage: UNK, QD (APPLY DAILY FOR SIX WEEKS, THEN ALTERNATE DAYS ...)
     Route: 065
     Dates: start: 20241201
  10. AMLODIPINE [Concomitant]
     Active Substance: AMLODIPINE BESYLATE
     Indication: Ill-defined disorder
     Dosage: 1 DOSAGE FORM, QD (ONE TO BE TAKEN EACH DAY)
     Route: 065
     Dates: start: 20240812, end: 20241202
  11. BEMPEDOIC ACID [Concomitant]
     Active Substance: BEMPEDOIC ACID
     Indication: Ill-defined disorder
     Dosage: 1 DOSAGE FORM, QD (TAKE ONE DAILY FOR CHOLESTEROL REDUCTION TARGET...)
     Route: 065
     Dates: start: 20240812
  12. BEMPEDOIC ACID [Concomitant]
     Active Substance: BEMPEDOIC ACID
     Indication: Blood cholesterol increased
  13. BETESIL [Concomitant]
     Indication: Ill-defined disorder
     Dosage: UNK, QD (APPLY ON NEW ERROSIONS DAILY FOR ONE MONTH AS P...)
     Route: 065
     Dates: start: 20240812
  14. BETESIL [Concomitant]
     Indication: Skin erosion
  15. Cetraben [Concomitant]
     Indication: Ill-defined disorder
     Dosage: UNK, TID (APPLY UPTO THREE TIMES DAILY WHEN REQUIRED)
     Route: 065
     Dates: start: 20240812
  16. COCODAMOL [Concomitant]
     Active Substance: ACETAMINOPHEN\CODEINE PHOSPHATE
     Indication: Ill-defined disorder
     Dosage: 1 DOSAGE FORM, QID (ONE TO BE TAKEN FOUR TIMES A DAY)
     Route: 065
     Dates: start: 20240812
  17. FEXOFENADINE [Concomitant]
     Active Substance: FEXOFENADINE HYDROCHLORIDE
     Indication: Ill-defined disorder
     Dosage: 1 DOSAGE FORM, QD (ONE TO BE TAKEN EACH DAY)
     Route: 065
     Dates: start: 20240812
  18. IBUPROFEN [Concomitant]
     Active Substance: IBUPROFEN
     Indication: Ill-defined disorder
     Dosage: UNK, TID (APPLY THREE TIMES DAILY AS REQUIRED)
     Route: 065
     Dates: start: 20240812
  19. LANSOPRAZOLE [Concomitant]
     Active Substance: LANSOPRAZOLE
     Indication: Ill-defined disorder
     Dosage: 1 DOSAGE FORM, AM (ONE TO BE TAKEN EACH MORNING)
     Route: 065
     Dates: start: 20240812, end: 20241122
  20. MELATONIN [Concomitant]
     Active Substance: MELATONIN
     Indication: Ill-defined disorder
     Dosage: 4 DOSAGE FORM, PM (FOUR AT NIGHT -  DOSE TAKEN 30-60 MINUTES BEFOR...)
     Route: 065
     Dates: start: 20240812
  21. NAPROXEN [Concomitant]
     Active Substance: NAPROXEN
     Indication: Ill-defined disorder
     Dosage: 1 DOSAGE FORM, BID (ONE TO BE TAKEN TWICE A DAY WITH FOOD)
     Route: 065
     Dates: start: 20240812
  22. TEGRETOL [Concomitant]
     Active Substance: CARBAMAZEPINE
     Indication: Ill-defined disorder
     Dosage: 1 DOSAGE FORM, QD (ONE A DAY FOR TWO WEEKS AND THEN INCREASE TO TW...)
     Route: 065
     Dates: start: 20240812
  23. VENLAFAXINE [Concomitant]
     Active Substance: VENLAFAXINE HYDROCHLORIDE
     Indication: Ill-defined disorder
     Dosage: 1 DOSAGE FORM, AM  (ONE TO BE TAKEN EACH DAY IN THE MORNING (DAILY ...)
     Route: 065
     Dates: start: 20240812
  24. ZOPICLONE [Concomitant]
     Active Substance: ZOPICLONE
     Indication: Ill-defined disorder
     Dosage: 1 DOSAGE FORM, PM (TAKE ONE AT NIGHT BEFORE BED - UNTIL MELATONIN ...)
     Route: 065
     Dates: start: 20240812
  25. IRBESARTAN [Concomitant]
     Active Substance: IRBESARTAN
     Indication: Ill-defined disorder
     Dosage: 1 DOSAGE FORM, AM 1 TO BE TAKEN EACH MORNING - STOP CANDESARTAN -...)
     Route: 065
     Dates: start: 20240916, end: 20241004
  26. LISINOPRIL [Concomitant]
     Active Substance: LISINOPRIL
     Indication: Ill-defined disorder
     Dosage: 1 DOSAGE FORM, BID (1 TO BE TAKEN TWICE DAILY - MORNING AND EVENING...)
     Route: 065
     Dates: start: 20241004, end: 20241022
  27. OMEPRAZOLE [Concomitant]
     Active Substance: OMEPRAZOLE
     Indication: Ill-defined disorder
     Dosage: 1 DOSAGE FORM, AM (ONE TO BE TAKEN EACH MORNING 30 MINS BEFORE MEA...)
     Route: 065
     Dates: start: 20241122
  28. DOXAZOSIN [Concomitant]
     Active Substance: DOXAZOSIN\DOXAZOSIN MESYLATE
     Indication: Ill-defined disorder
     Dosage: 1 DOSAGE FORM, QD (1 AT TEATIME)
     Route: 065
     Dates: start: 20241125, end: 20241202
  29. NIFEDIPINE [Concomitant]
     Active Substance: NIFEDIPINE
     Indication: Ill-defined disorder
     Dosage: 1 DOSAGE FORM, BID (TAKE ONE TWICE DAILY - WAIT TWO WEEKS THEN REPE...)
     Route: 065
     Dates: start: 20241202

REACTIONS (3)
  - Adrenal insufficiency [Recovered/Resolved]
  - Glomerular filtration rate decreased [Unknown]
  - Blood pressure inadequately controlled [Unknown]
